FAERS Safety Report 5069066-2 (Version None)
Quarter: 2006Q3

REPORT INFORMATION
  Report Type: 
  Country: None (occurrence: None)
  Receive Date: 20060731
  Receipt Date: 20060719
  Transmission Date: 20061208
  Serious: Yes (Other)
  Sender: FDA-Public Use
  Company Number: 2006090074

PATIENT
  Age: 56 Year
  Sex: Female
  Weight: 56.6996 kg

DRUGS (1)
  1. ZOLOFT [Suspect]
     Indication: DEPRESSION
     Dosage: 50 MG INTERVAL

REACTIONS (8)
  - ANHEDONIA [None]
  - ANOREXIA [None]
  - DEPRESSED MOOD [None]
  - GASTRIC DISORDER [None]
  - NAUSEA [None]
  - THYROID DISORDER [None]
  - TREATMENT NONCOMPLIANCE [None]
  - WEIGHT DECREASED [None]
